FAERS Safety Report 18686480 (Version 1)
Quarter: 2020Q4

REPORT INFORMATION
  Report Type: Spontaneous
  Country: US (occurrence: US)
  Receive Date: 20201230
  Receipt Date: 20201230
  Transmission Date: 20210114
  Serious: Yes (Other)
  Sender: FDA-Public Use
  Company Number: US-JNJFOC-20201242984

PATIENT
  Age: 58 Year
  Sex: Male

DRUGS (1)
  1. PARACETAMOL [Suspect]
     Active Substance: ACETAMINOPHEN
     Indication: TOOTHACHE
     Route: 048

REACTIONS (3)
  - Acute hepatic failure [Recovering/Resolving]
  - Accidental overdose [Unknown]
  - Nephropathy [Recovering/Resolving]
